FAERS Safety Report 25502182 (Version 1)
Quarter: 2025Q3

REPORT INFORMATION
  Report Type: Spontaneous
  Country: US (occurrence: US)
  Receive Date: 20250702
  Receipt Date: 20250702
  Transmission Date: 20251021
  Serious: Yes (Life-Threatening, Hospitalization, Other)
  Sender: HIKMA
  Company Number: US-HIKMA PHARMACEUTICALS USA INC.-US-H14001-25-07949

PATIENT
  Age: 58 Year
  Sex: Female
  Weight: 72 kg

DRUGS (6)
  1. BRENTUXIMAB VEDOTIN [Suspect]
     Active Substance: BRENTUXIMAB VEDOTIN
     Indication: Peripheral T-cell lymphoma unspecified
     Dosage: 1.8 MILLIGRAM/KILOGRAM, CYCLIC (ON DAY 1 OF EACH CYCLE)
     Route: 042
     Dates: start: 20240111, end: 20250220
  2. CYCLOPHOSPHAMIDE [Suspect]
     Active Substance: CYCLOPHOSPHAMIDE
     Indication: Peripheral T-cell lymphoma unspecified
     Dosage: 750 MILLIGRAM/SQ. METER, CYCLIC (DAY 1, 1 CYCLE = 21 DAYS)
     Route: 042
     Dates: start: 20240111, end: 20250130
  3. DOXORUBICIN [Suspect]
     Active Substance: DOXORUBICIN
     Indication: Peripheral T-cell lymphoma unspecified
     Dosage: 50 MILLIGRAM/SQ. METER, CYCLIC (DAY 1, 1 CYCLE = 21 DAYS)
     Route: 042
     Dates: start: 20240111, end: 20250130
  4. ETOPOSIDE [Suspect]
     Active Substance: ETOPOSIDE
     Indication: Peripheral T-cell lymphoma unspecified
     Dosage: 100 MILLIGRAM/SQ. METER, CYCLIC (DAY 1, 1 CYCLE = 21 DAYS)
     Route: 042
     Dates: start: 20240111, end: 20250130
  5. ETOPOSIDE [Suspect]
     Active Substance: ETOPOSIDE
     Indication: Peripheral T-cell lymphoma unspecified
     Dosage: 200 MILLIGRAM/SQ. METER, CYCLIC (DAY 2 - DAY 3, 1 CYCLE = 21 DAYS)
     Route: 048
     Dates: start: 20240111, end: 20250201
  6. PREDNISONE [Suspect]
     Active Substance: PREDNISONE
     Indication: Peripheral T-cell lymphoma unspecified
     Dosage: 100 MILLIGRAM, CYCLIC (DAILY DAY 1-DAY 5, 1 CYCLE = 21 DAYS)
     Route: 065
     Dates: start: 20240111, end: 20250130

REACTIONS (10)
  - Anaemia [Recovered/Resolved]
  - Fatigue [Unknown]
  - Dizziness [Unknown]
  - Hypotension [Unknown]
  - Neutropenia [Unknown]
  - Hydronephrosis [Unknown]
  - Tachycardia [Unknown]
  - Urinary retention [Unknown]
  - Dehydration [Unknown]
  - Troponin increased [Recovering/Resolving]

NARRATIVE: CASE EVENT DATE: 20250208
